FAERS Safety Report 10189426 (Version 1)
Quarter: 2014Q2

REPORT INFORMATION
  Report Type: Spontaneous
  Country: CA (occurrence: CA)
  Receive Date: 20140522
  Receipt Date: 20140522
  Transmission Date: 20141212
  Serious: Yes (Hospitalization, Other)
  Sender: FDA-Public Use
  Company Number: CA-BAXTER-2014BAX025205

PATIENT
  Age: 90 Year
  Sex: Female

DRUGS (4)
  1. DIANEAL PD4 SOLUTION WITH 1.5% DEXTROSE AND 2.5 MEQ/L CALCIUM [Suspect]
     Indication: RENAL FAILURE
     Route: 033
  2. DIANEAL PD4 SOLUTION WITH 2.5% DEXTROSE AND 2.5 MEQ/L CALCIUM [Suspect]
     Indication: RENAL FAILURE
     Route: 033
  3. DIANEAL PD4 SOLUTION WITH 2.5% DEXTROSE AND 2.5 MEQ/L CALCIUM [Suspect]
     Route: 033
  4. DIGOXIN [Suspect]
     Indication: VENTRICULAR FIBRILLATION

REACTIONS (3)
  - Ventricular fibrillation [Not Recovered/Not Resolved]
  - Drug hypersensitivity [Recovered/Resolved]
  - Adverse drug reaction [Recovered/Resolved]
